FAERS Safety Report 5119470-9 (Version None)
Quarter: 2006Q3

REPORT INFORMATION
  Report Type: 
  Country: None (occurrence: None)
  Receive Date: 20060929
  Receipt Date: 20060918
  Transmission Date: 20061208
  Serious: Yes (Death, Other)
  Sender: FDA-Public Use
  Company Number: 2006103321

PATIENT
  Age: 58 Year
  Sex: Female
  Weight: 131.5431 kg

DRUGS (5)
  1. LIPITOR [Suspect]
     Indication: ACUTE CORONARY SYNDROME
     Dosage: 80 MG (80 MG, 1 IN 1 D)
     Dates: start: 20060603, end: 20060625
  2. SEROQUEL [Concomitant]
  3. LISINOPRIL [Concomitant]
  4. METOPROLOL (METOPROLOL) [Concomitant]
  5. FUROSEMIDE [Concomitant]

REACTIONS (1)
  - RHABDOMYOLYSIS [None]
